FAERS Safety Report 8985708 (Version 6)
Quarter: 2013Q4

REPORT INFORMATION
  Report Type: Report from Study
  Country: US (occurrence: US)
  Receive Date: 20121226
  Receipt Date: 20131025
  Transmission Date: 20140711
  Serious: Yes (Death)
  Sender: FDA-Public Use
  Company Number: US-PFIZER INC-2012317027

PATIENT
  Age: 57 Year
  Sex: Male
  Weight: 89.8 kg

DRUGS (11)
  1. TOFACITINIB CITRATE [Suspect]
     Indication: RHEUMATOID ARTHRITIS
     Dosage: 10 MG, 2X/DAY
     Route: 048
     Dates: start: 20071112, end: 20121203
  2. ACTONEL [Concomitant]
     Indication: OSTEOPENIA
     Dosage: 35 MG, 1X/DAY
     Route: 048
     Dates: start: 20081014
  3. PREDNISONE [Concomitant]
     Indication: RHEUMATOID ARTHRITIS
     Dosage: 10 MG, 1X/DAY
     Route: 048
     Dates: start: 20070410
  4. FOLIC ACID [Concomitant]
     Indication: PROPHYLAXIS
     Dosage: 1 MG, 1X/DAY
     Route: 048
     Dates: start: 20030712
  5. FOLIC ACID [Concomitant]
     Indication: RHEUMATOID ARTHRITIS
  6. METHOTREXATE [Concomitant]
     Indication: RHEUMATOID ARTHRITIS
     Dosage: 25 MG, WEEKLY
     Route: 048
     Dates: start: 20060619, end: 20121203
  7. HYDROCODONE [Concomitant]
     Indication: RHEUMATOID ARTHRITIS
     Dosage: DOSE: 7.5/325 MG, 1X/DAY
     Route: 048
     Dates: start: 20100614
  8. HYDROCODONE [Concomitant]
     Indication: BACK PAIN
  9. TYLENOL PM [Concomitant]
     Indication: INSOMNIA
     Dosage: 25 MG, 1X/DAY
     Route: 048
     Dates: start: 20090210
  10. VIAGRA [Concomitant]
     Indication: ERECTILE DYSFUNCTION
     Dosage: 50 MG, AS NEEDED
     Route: 048
     Dates: start: 20081014
  11. MOBIC [Concomitant]
     Indication: RHEUMATOID ARTHRITIS
     Dosage: 15 MG, 1X/DAY
     Route: 048
     Dates: start: 20120430

REACTIONS (1)
  - Lung cancer metastatic [Fatal]
